FAERS Safety Report 8202935-0 (Version None)
Quarter: 2012Q1

REPORT INFORMATION
  Report Type: 
  Country: None (occurrence: None)
  Receive Date: 20120312
  Receipt Date: 20120301
  Transmission Date: 20120608
  Serious: Yes (Hospitalization, Other)
  Sender: FDA-Public Use
  Company Number: BR-ASTRAZENECA-2011SE71476

PATIENT
  Age: 70 Year
  Sex: Male
  Weight: 72.7 kg

DRUGS (2)
  1. ATACAND [Suspect]
     Indication: HYPERTENSION
     Dosage: DAILY
     Route: 048
     Dates: start: 20040101
  2. BRILINTA [Suspect]
     Indication: CARDIOVASCULAR DISORDER
     Dosage: TWO TIMES DAILY
     Route: 048
     Dates: start: 20110101

REACTIONS (4)
  - WEIGHT INCREASED [None]
  - BLOOD CHOLESTEROL INCREASED [None]
  - CARDIOVASCULAR DISORDER [None]
  - CORONARY ARTERY OCCLUSION [None]
